FAERS Safety Report 23787928 (Version 1)
Quarter: 2024Q2

REPORT INFORMATION
  Report Type: Other
  Country: US (occurrence: None)
  Receive Date: 20240426
  Receipt Date: 20240426
  Transmission Date: 20240715
  Serious: Yes (Hospitalization, Other)
  Sender: FDA-Public Use
  Company Number: US-ROCHE-3550544

PATIENT
  Age: 80 Year
  Sex: Female

DRUGS (20)
  1. ESBRIET [Suspect]
     Active Substance: PIRFENIDONE
     Indication: Idiopathic pulmonary fibrosis
     Dosage: 1 TAB 3 X DAY - DAY 1-7, 2 TAB 3 X DAY. DAY 8-14, 3 TAB 3 X DAY DAY 15
     Route: 048
     Dates: start: 20230404, end: 20240404
  2. ALBUTEROL [Concomitant]
     Active Substance: ALBUTEROL
  3. ASPIRIN [Concomitant]
     Active Substance: ASPIRIN
     Route: 048
  4. ATORVASTATIN [Concomitant]
     Active Substance: ATORVASTATIN
     Route: 048
  5. BIOTIN [Concomitant]
     Active Substance: BIOTIN
     Route: 048
  6. CHOLECALCIFEROL [Concomitant]
     Active Substance: CHOLECALCIFEROL
     Dosage: 25 MCG
     Route: 048
  7. CINNAMON [Concomitant]
     Active Substance: CINNAMON
     Route: 048
  8. FLONASE [Concomitant]
     Active Substance: FLUTICASONE PROPIONATE
     Dosage: 50 MCG
     Route: 045
  9. LASIX [Concomitant]
     Active Substance: FUROSEMIDE
     Route: 048
  10. GLUCOSAMINE/CHONDR SU A SOD [Concomitant]
  11. LEFLUNOMIDE [Concomitant]
     Active Substance: LEFLUNOMIDE
     Route: 048
  12. LORATADINE [Concomitant]
     Active Substance: LORATADINE
     Route: 048
  13. COZAAR [Concomitant]
     Active Substance: LOSARTAN POTASSIUM
     Route: 048
  14. MAGNESIUM [Concomitant]
     Active Substance: MAGNESIUM
     Route: 048
  15. MELOXICAM [Concomitant]
     Active Substance: MELOXICAM
     Route: 048
  16. MINERALS\VITAMINS [Concomitant]
     Active Substance: MINERALS\VITAMINS
     Route: 048
  17. SERTRALINE [Concomitant]
     Active Substance: SERTRALINE HYDROCHLORIDE
     Route: 048
  18. TRULICITY [Concomitant]
     Active Substance: DULAGLUTIDE
     Route: 058
  19. HERBALS\TURMERIC [Concomitant]
     Active Substance: HERBALS\TURMERIC
  20. AMBIEN [Concomitant]
     Active Substance: ZOLPIDEM TARTRATE

REACTIONS (11)
  - Cerebrovascular accident [Not Recovered/Not Resolved]
  - Sepsis [Unknown]
  - Dyslipidaemia [Unknown]
  - Type 2 diabetes mellitus [Unknown]
  - Hyperglycaemia [Unknown]
  - Obesity [Unknown]
  - Anxiety [Unknown]
  - Depression [Unknown]
  - Rheumatoid arthritis [Unknown]
  - Urinary incontinence [Unknown]
  - COVID-19 [Unknown]

NARRATIVE: CASE EVENT DATE: 20240101
